FAERS Safety Report 6139998-2 (Version None)
Quarter: 2009Q1

REPORT INFORMATION
  Report Type: 
  Country: None (occurrence: None)
  Receive Date: 20090331
  Receipt Date: 20090331
  Transmission Date: 20090719
  Serious: Yes (Life-Threatening)
  Sender: FDA-Public Use
  Company Number: None

PATIENT
  Age: 32 Year
  Sex: Male
  Weight: 81.6475 kg

DRUGS (3)
  1. OFLOXACIN [Suspect]
     Indication: OROPHARYNGEAL PAIN
     Dosage: 100 MG? 2/DAY PO
     Route: 048
  2. ACETAMINOPHEN [Suspect]
     Indication: BACK PAIN
     Dosage: 1 TABLET
  3. ACETAMINOPHEN [Suspect]
     Indication: HEADACHE
     Dosage: 1 TABLET

REACTIONS (12)
  - BACK PAIN [None]
  - BONE PAIN [None]
  - CARDIAC DISORDER [None]
  - DYSPNOEA [None]
  - FATIGUE [None]
  - HEADACHE [None]
  - MIDDLE INSOMNIA [None]
  - MYDRIASIS [None]
  - OEDEMA [None]
  - PARAESTHESIA [None]
  - TINNITUS [None]
  - TREMOR [None]
